FAERS Safety Report 22230795 (Version 3)
Quarter: 2023Q2

REPORT INFORMATION
  Report Type: Report from Study
  Country: US (occurrence: US)
  Receive Date: 20230420
  Receipt Date: 20230426
  Transmission Date: 20230721
  Serious: Yes (Other)
  Sender: FDA-Public Use
  Company Number: US-JNJFOC-20230423498

PATIENT
  Age: 51 Year
  Sex: Female
  Weight: 108.96 kg

DRUGS (4)
  1. SPRAVATO [Suspect]
     Active Substance: ESKETAMINE
     Indication: Depression
     Dosage: 56 MG, 2 TOTAL DOSES
     Dates: start: 20230403, end: 20230406
  2. SPRAVATO [Suspect]
     Active Substance: ESKETAMINE
     Indication: Anxiety
     Dosage: ALSO CONFLICTINGLY REPORTED AS 11-APR-2023
     Dates: start: 20230410, end: 20230410
  3. SPRAVATO [Suspect]
     Active Substance: ESKETAMINE
     Indication: Anhedonia
  4. BUPROPION HYDROCHLORIDE [Concomitant]
     Active Substance: BUPROPION HYDROCHLORIDE
     Route: 065

REACTIONS (2)
  - Suicidal ideation [Not Recovered/Not Resolved]
  - Dissociation [Unknown]

NARRATIVE: CASE EVENT DATE: 20230401
